FAERS Safety Report 19892888 (Version 10)
Quarter: 2023Q2

REPORT INFORMATION
  Report Type: Report from Study
  Country: CA (occurrence: CA)
  Receive Date: 20210928
  Receipt Date: 20230629
  Transmission Date: 20230722
  Serious: Yes (Other)
  Sender: FDA-Public Use
  Company Number: CA-TAKEDA-2021TUS014121

PATIENT
  Age: 41 Year
  Sex: Female

DRUGS (7)
  1. VEDOLIZUMAB [Suspect]
     Active Substance: VEDOLIZUMAB
     Indication: Colitis ulcerative
     Dosage: 300 MILLIGRAM
     Route: 042
     Dates: start: 20210205
  2. VEDOLIZUMAB [Suspect]
     Active Substance: VEDOLIZUMAB
     Dosage: 300 MILLIGRAM
     Route: 042
  3. VEDOLIZUMAB [Suspect]
     Active Substance: VEDOLIZUMAB
     Dosage: 300 MILLIGRAM
     Route: 042
  4. VEDOLIZUMAB [Suspect]
     Active Substance: VEDOLIZUMAB
     Dosage: 300 MILLIGRAM
     Route: 042
  5. VEDOLIZUMAB [Suspect]
     Active Substance: VEDOLIZUMAB
     Dosage: 300 MILLIGRAM
     Route: 042
  6. VEDOLIZUMAB [Suspect]
     Active Substance: VEDOLIZUMAB
     Dosage: 300 MILLIGRAM
     Route: 042
  7. MODERNA COVID-19 VACCINE [Suspect]
     Active Substance: ELASOMERAN
     Dosage: UNK
     Route: 065

REACTIONS (29)
  - Pericarditis [Unknown]
  - Colitis ulcerative [Unknown]
  - Angioedema [Unknown]
  - Haematochezia [Unknown]
  - Alopecia [Unknown]
  - Post-traumatic stress disorder [Unknown]
  - Endometriosis [Unknown]
  - Frequent bowel movements [Unknown]
  - Diarrhoea [Unknown]
  - Lipase abnormal [Recovered/Resolved]
  - Pain [Unknown]
  - Illness [Unknown]
  - Hypophagia [Unknown]
  - Peripheral swelling [Unknown]
  - Swelling [Unknown]
  - Fibrin D dimer increased [Unknown]
  - Stool analysis abnormal [Unknown]
  - Proctalgia [Unknown]
  - Therapeutic reaction time decreased [Unknown]
  - Drug hypersensitivity [Unknown]
  - Panic attack [Unknown]
  - Anxiety [Unknown]
  - Abdominal pain [Recovering/Resolving]
  - Dyspnoea [Unknown]
  - Chest pain [Unknown]
  - Urticaria [Unknown]
  - Constipation [Unknown]
  - Rash [Unknown]
  - Pain in extremity [Unknown]

NARRATIVE: CASE EVENT DATE: 20210801
